FAERS Safety Report 7933481-7 (Version None)
Quarter: 2011Q4

REPORT INFORMATION
  Report Type: 
  Country: None (occurrence: None)
  Receive Date: 20111122
  Receipt Date: 20111110
  Transmission Date: 20120403
  Serious: Yes (Hospitalization, Other)
  Sender: FDA-Public Use
  Company Number: US-ELI_LILLY_AND_COMPANY-US201111005013

PATIENT
  Sex: Female

DRUGS (9)
  1. LOPIDINE                           /00948501/ [Concomitant]
  2. ASPIRIN [Concomitant]
  3. FORTEO [Suspect]
     Indication: OSTEOPOROSIS
     Dosage: 20 UG, QD
     Dates: start: 20080101, end: 20080101
  4. DIOVAN [Concomitant]
  5. CALCIUM [Concomitant]
  6. METOPROLOL TARTRATE [Concomitant]
  7. ROSUVASTATIN CALCIUM [Concomitant]
  8. B-COMPLEX                          /00003501/ [Concomitant]
  9. FISH OIL [Concomitant]

REACTIONS (4)
  - ADVERSE REACTION [None]
  - BONE DISORDER [None]
  - CONTUSION [None]
  - LYMPHOMA [None]
